FAERS Safety Report 5952472-9 (Version None)
Quarter: 2008Q4

REPORT INFORMATION
  Report Type: 
  Country: None (occurrence: None)
  Receive Date: 20081113
  Receipt Date: 20081104
  Transmission Date: 20090506
  Serious: Yes (Hospitalization, Disabling, Other)
  Sender: FDA-Public Use
  Company Number: US-PFIZER INC-2007047382

PATIENT
  Sex: Female
  Weight: 63.5 kg

DRUGS (10)
  1. LIPITOR [Suspect]
     Indication: HYPERLIPIDAEMIA
     Route: 048
     Dates: start: 20070101, end: 20070401
  2. ACETYLSALICYLIC ACID SRT [Concomitant]
  3. VITAMINS [Concomitant]
  4. TYLENOL [Concomitant]
  5. PREDNISONE TAB [Concomitant]
  6. TOPROL-XL [Concomitant]
     Dosage: DAILY DOSE:25MG-FREQ:DAILY
     Route: 048
     Dates: start: 20070301
  7. NIACIN [Concomitant]
     Dosage: DAILY DOSE:500MG
     Route: 048
     Dates: end: 20070306
  8. GABAPENTIN [Concomitant]
     Route: 048
  9. PROTONIX [Concomitant]
     Route: 048
  10. CALCIUM [Concomitant]

REACTIONS (14)
  - ATRIAL FIBRILLATION [None]
  - C-REACTIVE PROTEIN INCREASED [None]
  - CONTUSION [None]
  - INTERNATIONAL NORMALISED RATIO INCREASED [None]
  - LIVER FUNCTION TEST ABNORMAL [None]
  - LUNG INFILTRATION [None]
  - MEMORY IMPAIRMENT [None]
  - MUSCULAR WEAKNESS [None]
  - OEDEMA PERIPHERAL [None]
  - PROTHROMBIN TIME PROLONGED [None]
  - RED BLOOD CELL SEDIMENTATION RATE INCREASED [None]
  - SKIN BURNING SENSATION [None]
  - TRANSIENT ISCHAEMIC ATTACK [None]
  - WHITE BLOOD CELL COUNT INCREASED [None]
